FAERS Safety Report 14882777 (Version 1)
Quarter: 2018Q2

REPORT INFORMATION
  Report Type: Spontaneous
  Country: US (occurrence: US)
  Receive Date: 20180511
  Receipt Date: 20180511
  Transmission Date: 20180711
  Serious: No
  Sender: FDA-Public Use
  Company Number: US-ALLERGAN-1817252US

PATIENT
  Age: 43 Year
  Sex: Female

DRUGS (1)
  1. RHOFADE [Suspect]
     Active Substance: OXYMETAZOLINE HYDROCHLORIDE
     Indication: ROSACEA
     Dosage: 1 GTT, QD
     Route: 061

REACTIONS (4)
  - Application site irritation [Recovering/Resolving]
  - Application site dryness [Recovering/Resolving]
  - Drug ineffective [Unknown]
  - Rosacea [Recovering/Resolving]
